FAERS Safety Report 7835562-5 (Version None)
Quarter: 2011Q4

REPORT INFORMATION
  Report Type: 
  Country: None (occurrence: None)
  Receive Date: 20111024
  Receipt Date: 20111020
  Transmission Date: 20120403
  Serious: Yes (Other)
  Sender: FDA-Public Use
  Company Number: US-ABBOTT-11P-163-0865278-00

PATIENT
  Sex: Female
  Weight: 61.29 kg

DRUGS (3)
  1. CITALOPRAM [Concomitant]
     Indication: ANXIETY
  2. HUMIRA [Suspect]
     Indication: CROHN'S DISEASE
     Dates: start: 20090101
  3. PREDNISONE [Concomitant]
     Indication: CROHN'S DISEASE

REACTIONS (10)
  - MIGRAINE [None]
  - CONVULSION [None]
  - HYPOAESTHESIA [None]
  - VISION BLURRED [None]
  - DRUG INEFFECTIVE [None]
  - PAROSMIA [None]
  - PARAESTHESIA [None]
  - HEADACHE [None]
  - AURA [None]
  - TERMINAL INSOMNIA [None]
